FAERS Safety Report 8937054 (Version 1)
Quarter: 2012Q4

REPORT INFORMATION
  Report Type: 
  Country: US (occurrence: US)
  Receive Date: 20121130
  Receipt Date: 20121130
  Transmission Date: 20130627
  Serious: No
  Sender: FDA-Public Use
  Company Number: US-B.I. PHARMACEUTICALS,INC./RIDGEFIELD-2012-BP-27484BP

PATIENT
  Age: 85 None
  Sex: Female
  Weight: 52 kg

DRUGS (5)
  1. COMBIVENT [Suspect]
     Indication: CHRONIC OBSTRUCTIVE PULMONARY DISEASE
     Route: 055
     Dates: start: 1997, end: 20121108
  2. COMBIVENT [Suspect]
     Indication: CHRONIC OBSTRUCTIVE PULMONARY DISEASE
     Route: 055
     Dates: start: 20121108
  3. NEURONTIN [Concomitant]
  4. CYTOSINE [Concomitant]
  5. DUONEB [Concomitant]

REACTIONS (12)
  - Arthritis [Unknown]
  - Pain in extremity [Not Recovered/Not Resolved]
  - Faecaloma [Recovered/Resolved]
  - Eye movement disorder [Not Recovered/Not Resolved]
  - Chronic obstructive pulmonary disease [Not Recovered/Not Resolved]
  - Nerve compression [Not Recovered/Not Resolved]
  - Fibromyalgia [Not Recovered/Not Resolved]
  - Intervertebral disc degeneration [Unknown]
  - Hearing impaired [Not Recovered/Not Resolved]
  - Abdominal pain upper [Unknown]
  - Chest pain [Unknown]
  - Incorrect dose administered [Not Recovered/Not Resolved]
